FAERS Safety Report 7680489-5 (Version None)
Quarter: 2011Q3

REPORT INFORMATION
  Report Type: 
  Country: None (occurrence: None)
  Receive Date: 20110812
  Receipt Date: 20110731
  Transmission Date: 20111222
  Serious: Yes (Hospitalization, Other)
  Sender: FDA-Public Use
  Company Number: US-SHIRE-ALL1-2011-02539

PATIENT
  Age: 4 Month
  Sex: Female

DRUGS (1)
  1. VYVANSE [Suspect]
     Indication: PRODUCT USED FOR UNKNOWN INDICATION
     Dosage: 120 MG (FOUR 30 MG CAPSULES), UNKNOWN
     Route: 048
     Dates: start: 20110302, end: 20110302

REACTIONS (5)
  - STARING [None]
  - TACHYCARDIA [None]
  - MUSCULOSKELETAL STIFFNESS [None]
  - ACCIDENTAL EXPOSURE [None]
  - IRRITABILITY [None]
